FAERS Safety Report 14251767 (Version 1)
Quarter: 2017Q4

REPORT INFORMATION
  Report Type: Spontaneous
  Country: US (occurrence: US)
  Receive Date: 20171205
  Receipt Date: 20171205
  Transmission Date: 20180321
  Serious: Yes (Other)
  Sender: FDA-Public Use
  Company Number: US-TEVA-2017-US-829300

PATIENT
  Age: 6 Year
  Sex: Male

DRUGS (2)
  1. FEXOFENADINE [Suspect]
     Active Substance: FEXOFENADINE\FEXOFENADINE HYDROCHLORIDE
     Indication: COUGH
     Dosage: SUSPENSION; 30 MG/5 ML
     Dates: start: 20171119, end: 20171119
  2. FEXOFENADINE [Suspect]
     Active Substance: FEXOFENADINE\FEXOFENADINE HYDROCHLORIDE
     Indication: SNEEZING

REACTIONS (5)
  - Vomiting [Unknown]
  - Erythema [Recovered/Resolved]
  - Feeling hot [Recovered/Resolved]
  - Dehydration [Unknown]
  - Pyrexia [Unknown]

NARRATIVE: CASE EVENT DATE: 20171119
